FAERS Safety Report 7418150-4 (Version None)
Quarter: 2011Q2

REPORT INFORMATION
  Report Type: 
  Country: None (occurrence: None)
  Receive Date: 20110415
  Receipt Date: 20110407
  Transmission Date: 20111010
  Serious: Yes (Hospitalization)
  Sender: FDA-Public Use
  Company Number: GB-ELI_LILLY_AND_COMPANY-GB200910007411

PATIENT
  Sex: Male

DRUGS (4)
  1. VITAMIN B-12 [Concomitant]
  2. DEXAMETHASONE [Concomitant]
  3. DIAZEPAM [Concomitant]
     Indication: DEPRESSION
  4. PEMETREXED [Suspect]
     Indication: NON-SMALL CELL LUNG CANCER
     Dosage: UNK, UNK
     Dates: start: 20090930

REACTIONS (5)
  - PNEUMONIA [None]
  - TACHYCARDIA [None]
  - COUGH [None]
  - DYSPNOEA [None]
  - LOWER RESPIRATORY TRACT INFECTION [None]
